FAERS Safety Report 18735461 (Version 1)
Quarter: 2021Q1

REPORT INFORMATION
  Report Type: Report from Study
  Country: None (occurrence: US)
  Receive Date: 20210113
  Receipt Date: 20210113
  Transmission Date: 20210419
  Serious: Yes (Hospitalization, Other)
  Sender: FDA-Public Use
  Company Number: US-ABBVIE-20K-163-3372166-00

PATIENT
  Sex: Male
  Weight: 95.34 kg

DRUGS (3)
  1. VANCOMYCIN [Concomitant]
     Active Substance: VANCOMYCIN
     Indication: PRODUCT USED FOR UNKNOWN INDICATION
  2. HUMIRA [Suspect]
     Active Substance: ADALIMUMAB
     Indication: RHEUMATOID ARTHRITIS
     Dosage: STARTED IN FIRST QUARTER OF 2918
     Route: 058
     Dates: start: 2018, end: 202001
  3. HUMIRA [Suspect]
     Active Substance: ADALIMUMAB
     Indication: ARTHRITIS

REACTIONS (4)
  - Therapeutic product effect incomplete [Unknown]
  - Pain [Recovered/Resolved]
  - Sepsis [Recovered/Resolved]
  - Spinal synovial cyst [Recovered/Resolved]

NARRATIVE: CASE EVENT DATE: 2019
